FAERS Safety Report 8063643-2 (Version None)
Quarter: 2012Q1

REPORT INFORMATION
  Report Type: 
  Country: None (occurrence: None)
  Receive Date: 20120123
  Receipt Date: 20120122
  Transmission Date: 20120608
  Serious: Yes (Other)
  Sender: FDA-Public Use
  Company Number: US-JNJFOC-20120102760

PATIENT
  Sex: Male
  Weight: 85.73 kg

DRUGS (9)
  1. NUCYNTA [Suspect]
     Indication: PAIN
     Dosage: 3 TIMES A DAY
     Route: 048
     Dates: start: 20120106
  2. AMBIEN CR [Concomitant]
     Indication: INSOMNIA
     Dosage: ONCE A DAY
     Route: 048
  3. LEXAPRO [Concomitant]
     Indication: ANXIETY
     Dosage: ONCE A DAY
     Route: 048
     Dates: start: 20060101
  4. LEXAPRO [Concomitant]
     Indication: POST-TRAUMATIC STRESS DISORDER
     Dosage: ONCE A DAY
     Route: 048
     Dates: start: 20060101
  5. LEXAPRO [Concomitant]
     Indication: DEPRESSION
     Dosage: ONCE A DAY
     Route: 048
     Dates: start: 20060101
  6. FENTANYL-100 [Suspect]
     Indication: PAIN
     Route: 062
  7. TOPAMAX [Suspect]
     Indication: NEURALGIA
     Dosage: 25MG 4 TIMES A DAY
     Route: 048
     Dates: start: 20110101
  8. TRAMADOL HCL [Suspect]
     Indication: PAIN
     Dosage: EVERY 4-6 HOURS AS NEEDED
     Route: 048
     Dates: start: 20110401, end: 20110101
  9. TOPAMAX [Suspect]
     Indication: CONVULSION
     Dosage: 25MG 4 TIMES A DAY
     Route: 048
     Dates: start: 20110101

REACTIONS (5)
  - CONVULSION [None]
  - HYPOPNOEA [None]
  - DYSPEPSIA [None]
  - DRUG INEFFECTIVE [None]
  - ANXIETY [None]
